FAERS Safety Report 6510924-7 (Version None)
Quarter: 2009Q4

REPORT INFORMATION
  Report Type: 
  Country: None (occurrence: None)
  Receive Date: 20091222
  Receipt Date: 20090302
  Transmission Date: 20100525
  Serious: No
  Sender: FDA-Public Use
  Company Number: US-ASTRAZENECA-2009UW03187

PATIENT
  Age: 18546 Day
  Sex: Male
  Weight: 83.9 kg

DRUGS (2)
  1. CRESTOR [Suspect]
     Indication: HYPERCHOLESTEROLAEMIA
     Route: 048
     Dates: start: 20090130
  2. BABY ASPIRIN [Concomitant]

REACTIONS (3)
  - HEADACHE [None]
  - MALAISE [None]
  - MYALGIA [None]
